FAERS Safety Report 15496942 (Version 1)
Quarter: 2018Q4

REPORT INFORMATION
  Report Type: Spontaneous
  Country: GB (occurrence: GB)
  Receive Date: 20181015
  Receipt Date: 20181015
  Transmission Date: 20190205
  Serious: Yes (Death, Other)
  Sender: FDA-Public Use
  Company Number: GB-JNJFOC-20181011655

PATIENT

DRUGS (7)
  1. OMEPRAZOLE. [Suspect]
     Active Substance: OMEPRAZOLE
     Indication: PRODUCT USED FOR UNKNOWN INDICATION
     Route: 065
  2. LOPERAMIDE [Suspect]
     Active Substance: LOPERAMIDE
     Route: 065
  3. DIPHENHYDRAMINE. [Suspect]
     Active Substance: DIPHENHYDRAMINE
     Indication: PRODUCT USED FOR UNKNOWN INDICATION
     Route: 065
  4. DEXTROMETHORPHAN [Suspect]
     Active Substance: DEXTROMETHORPHAN
     Indication: PRODUCT USED FOR UNKNOWN INDICATION
     Route: 065
  5. CIMETIDINE [Suspect]
     Active Substance: CIMETIDINE
     Indication: PRODUCT USED FOR UNKNOWN INDICATION
     Route: 065
  6. QUINIDINE [Suspect]
     Active Substance: QUINIDINE
     Indication: PRODUCT USED FOR UNKNOWN INDICATION
     Route: 065
  7. LOPERAMIDE [Suspect]
     Active Substance: LOPERAMIDE
     Indication: PRODUCT USED FOR UNKNOWN INDICATION
     Route: 065

REACTIONS (31)
  - Completed suicide [Fatal]
  - Bradycardia [Unknown]
  - Heart rate irregular [Unknown]
  - Accidental overdose [Fatal]
  - Electrocardiogram QT prolonged [Unknown]
  - Conduction disorder [Unknown]
  - Drug use disorder [Fatal]
  - Intentional overdose [Unknown]
  - Cardiotoxicity [Fatal]
  - Cardio-respiratory arrest [Fatal]
  - Brugada syndrome [Unknown]
  - Electrocardiogram ST-T change [Unknown]
  - Hypokalaemia [Unknown]
  - Drug dependence [Unknown]
  - Loss of consciousness [Unknown]
  - Pulse abnormal [Unknown]
  - Hypotension [Unknown]
  - Overdose [Fatal]
  - Long QT syndrome [Unknown]
  - Drug abuse [Unknown]
  - Syncope [Unknown]
  - Tachycardia [Unknown]
  - Electrocardiogram QRS complex abnormal [Unknown]
  - Intentional product misuse [Fatal]
  - Torsade de pointes [Unknown]
  - Atrioventricular block [Unknown]
  - Drug withdrawal convulsions [Unknown]
  - Ventricular tachycardia [Unknown]
  - Arrhythmia [Fatal]
  - Ventricular fibrillation [Unknown]
  - Withdrawal syndrome [Unknown]
